FAERS Safety Report 18946837 (Version 1)
Quarter: 2021Q1

REPORT INFORMATION
  Report Type: Spontaneous
  Country: US (occurrence: US)
  Receive Date: 20210226
  Receipt Date: 20210226
  Transmission Date: 20210420
  Serious: No
  Sender: FDA-Public Use
  Company Number: US-EVOLUS, INC.-2021EV000013

PATIENT

DRUGS (4)
  1. JEUVEAU [Suspect]
     Active Substance: PRABOTULINUMTOXINA-XVFS
     Indication: SKIN WRINKLING
     Dosage: 12 UNITS EACH SIDE FOR CROW^S FEET, 2 UNITS EACH SIDE FOR BROW LIFT AND 12 UNITS IN FOREHEAD
     Dates: start: 20201230
  2. JEUVEAU [Suspect]
     Active Substance: PRABOTULINUMTOXINA-XVFS
     Indication: SKIN WRINKLING
     Dosage: 12 UNITS EACH SIDE FOR CROW^S FEET, 20 UNITS GLABELLAR AREA, 2 UNITS EACH SIDE FOR BROW LIFT AND 14
     Dates: start: 20201111
  3. JEUVEAU [Suspect]
     Active Substance: PRABOTULINUMTOXINA-XVFS
     Indication: PRODUCT USED FOR UNKNOWN INDICATION
     Dosage: 8 UNITS IN FOREHEAD
     Dates: start: 20201125
  4. JEUVEAU [Suspect]
     Active Substance: PRABOTULINUMTOXINA-XVFS
     Indication: FACE LIFT

REACTIONS (2)
  - Drug ineffective [Unknown]
  - Off label use [Unknown]
